FAERS Safety Report 9206212 (Version 1)
Quarter: 2013Q2

REPORT INFORMATION
  Report Type: Spontaneous
  Country: US (occurrence: None)
  Receive Date: 20130401
  Receipt Date: 20130401
  Transmission Date: 20140414
  Serious: Yes (Death, Life-Threatening, Hospitalization)
  Sender: FDA-Public Use
  Company Number: None

PATIENT
  Age: 62 Year
  Sex: Male
  Weight: 92.3 kg

DRUGS (1)
  1. ABATACEPT [Suspect]
     Indication: RHEUMATOID ARTHRITIS
     Route: 042
     Dates: start: 20120314, end: 20121017

REACTIONS (5)
  - Interstitial lung disease [None]
  - Renal failure acute [None]
  - Ischaemic hepatitis [None]
  - Coagulopathy [None]
  - Respiratory failure [None]
